FAERS Safety Report 16868182 (Version 1)
Quarter: 2019Q4

REPORT INFORMATION
  Report Type: Spontaneous
  Country: US (occurrence: US)
  Receive Date: 20190930
  Receipt Date: 20190930
  Transmission Date: 20200122
  Serious: Yes (Disabling)
  Sender: FDA-Public Use
  Company Number: None

PATIENT
  Age: 65 Year
  Sex: Male
  Weight: 94.5 kg

DRUGS (5)
  1. LANTANOPROST [Concomitant]
     Active Substance: LATANOPROST
  2. LISINOPRIL 20 MG HCTZ 12.5 MG [Suspect]
     Active Substance: HYDROCHLOROTHIAZIDE\LISINOPRIL
     Indication: HYPERTENSION
     Dosage: ?          QUANTITY:1 TABLET(S);?
     Route: 048
     Dates: start: 20190507, end: 20190601
  3. CETRIZINE [Concomitant]
     Active Substance: CETIRIZINE HYDROCHLORIDE
  4. ASPIRIN, LOW DOSE [Concomitant]
  5. KRILL OIL [Concomitant]
     Active Substance: DIETARY SUPPLEMENT\KRILL OIL

REACTIONS (7)
  - Hypoaesthesia [None]
  - Product quality issue [None]
  - Nausea [None]
  - Heart rate increased [None]
  - Product substitution issue [None]
  - Cardiac disorder [None]
  - Hypertension [None]

NARRATIVE: CASE EVENT DATE: 20190507
